FAERS Safety Report 23310461 (Version 1)
Quarter: 2023Q4

REPORT INFORMATION
  Report Type: Spontaneous
  Country: US (occurrence: US)
  Receive Date: 20231218
  Receipt Date: 20231218
  Transmission Date: 20240109
  Serious: No
  Sender: FDA-Public Use
  Company Number: US-FERRINGPH-2023FE04406

PATIENT
  Age: 81 Year
  Sex: Male

DRUGS (1)
  1. REBYOTA [Suspect]
     Active Substance: DONOR HUMAN STOOL
     Indication: Clostridium difficile infection
     Dosage: UNK
     Route: 054
     Dates: start: 20230629, end: 20230629

REACTIONS (2)
  - Diarrhoea [Unknown]
  - Clostridium test positive [Unknown]
